FAERS Safety Report 21916825 (Version 1)
Quarter: 2023Q1

REPORT INFORMATION
  Report Type: Spontaneous
  Country: CA (occurrence: CA)
  Receive Date: 20230126
  Receipt Date: 20230126
  Transmission Date: 20230417
  Serious: Yes (Other)
  Sender: FDA-Public Use
  Company Number: CA-PFIZER INC-202300036717

PATIENT
  Age: 71 Year
  Sex: Female
  Weight: 67 kg

DRUGS (8)
  1. SULFASALAZINE [Suspect]
     Active Substance: SULFASALAZINE
     Dosage: 1 DF DOSAGE INFO: UNKNOWNSTATUS: DISCONTINUED
     Route: 065
  2. CRESTOR [Concomitant]
     Active Substance: ROSUVASTATIN CALCIUM
     Dosage: 10 MG, DAILY (OD)
  3. DEXILANT [Concomitant]
     Active Substance: DEXLANSOPRAZOLE
     Dosage: UNK, AS NEEDED (PRN)
  4. IBUPROFEN [Concomitant]
     Active Substance: IBUPROFEN
     Dosage: 400 MG, 2X/DAY (BID)
  5. LEFLUNOMIDE [Concomitant]
     Active Substance: LEFLUNOMIDE
     Dosage: PREVIOUSLY USED, DATES UNK: STOPPED DUE TO LOE
  6. METHOTREXATE SODIUM [Concomitant]
     Active Substance: METHOTREXATE SODIUM
     Dosage: 1 DF DOSAGE INFO:  UNKNOWN
     Route: 065
     Dates: start: 2019, end: 202209
  7. PREDNISONE [Concomitant]
     Active Substance: PREDNISONE
     Indication: Condition aggravated
     Dosage: PRN TO MANAGE FLARE UPS
  8. VALTREX [Concomitant]
     Active Substance: VALACYCLOVIR HYDROCHLORIDE
     Dosage: UNK UNK, AS NEEDED (PRN)

REACTIONS (2)
  - Lung neoplasm malignant [Unknown]
  - Drug ineffective [Unknown]
